FAERS Safety Report 23629844 (Version 1)
Quarter: 2024Q1

REPORT INFORMATION
  Report Type: Report from Study
  Country: BR (occurrence: BR)
  Receive Date: 20240314
  Receipt Date: 20240314
  Transmission Date: 20240410
  Serious: Yes (Other)
  Sender: FDA-Public Use
  Company Number: BR-JNJFOC-20240320724

PATIENT
  Age: 44 Year
  Sex: Male
  Weight: 79 kg

DRUGS (1)
  1. INFLIXIMAB [Suspect]
     Active Substance: INFLIXIMAB
     Indication: Colitis ulcerative
     Dosage: 3 AND A HALF VIALS OF THE DRUG
     Route: 041

REACTIONS (4)
  - Colitis ulcerative [Unknown]
  - Dengue fever [Unknown]
  - Chikungunya virus infection [Unknown]
  - Inappropriate schedule of product administration [Unknown]
